FAERS Safety Report 5510739-2 (Version None)
Quarter: 2007Q4

REPORT INFORMATION
  Report Type: 
  Country: None (occurrence: None)
  Receive Date: 20071108
  Receipt Date: 20071030
  Transmission Date: 20080405
  Serious: Yes (Hospitalization)
  Sender: FDA-Public Use
  Company Number: B0381764A

PATIENT
  Sex: Male

DRUGS (8)
  1. SEROXAT [Suspect]
     Indication: DEPRESSION
     Route: 048
     Dates: start: 19950101, end: 19980501
  2. EFFEXOR [Suspect]
     Indication: DEPRESSION
  3. NOZINAN [Suspect]
  4. ZOLOFT [Suspect]
     Indication: DEPRESSION
  5. MELLARIL [Suspect]
     Indication: INSOMNIA
  6. IMOVANE [Suspect]
  7. ROHYPNOL [Concomitant]
  8. NEFADAR [Concomitant]

REACTIONS (29)
  - ABDOMINAL PAIN [None]
  - ANXIETY [None]
  - BALANCE DISORDER [None]
  - CARDIOVASCULAR DISORDER [None]
  - CHEST DISCOMFORT [None]
  - CHEST PAIN [None]
  - CHRONIC FATIGUE SYNDROME [None]
  - DECREASED APPETITE [None]
  - DEPRESSION [None]
  - DISABILITY [None]
  - DIZZINESS [None]
  - ERECTILE DYSFUNCTION [None]
  - FACIAL PALSY [None]
  - FATIGUE [None]
  - FEAR [None]
  - HEADACHE [None]
  - HEART RATE DECREASED [None]
  - HYPOTENSION [None]
  - JOINT STIFFNESS [None]
  - MUSCLE SPASMS [None]
  - MUSCLE TWITCHING [None]
  - PARAESTHESIA [None]
  - PHOTOSENSITIVITY REACTION [None]
  - SENSORY DISTURBANCE [None]
  - SLEEP DISORDER [None]
  - SOCIAL PHOBIA [None]
  - SOMATISATION DISORDER [None]
  - TINNITUS [None]
  - WEIGHT DECREASED [None]
